FAERS Safety Report 4945967-8 (Version None)
Quarter: 2006Q1

REPORT INFORMATION
  Report Type: 
  Country: None (occurrence: None)
  Receive Date: 20060125
  Receipt Date: 20051005
  Transmission Date: 20060701
  Serious: No
  Sender: FDA-Public Use
  Company Number: US-JNJFOC-20051001870

PATIENT
  Age: 79 Year
  Sex: Female
  Weight: 64.4108 kg

DRUGS (2)
  1. ERTACAO 2% (SERTACONAZOLE NITRATE) CREAM [Suspect]
     Indication: TINEA PEDIS
     Dosage: TOPICAL
     Route: 061
     Dates: start: 20050925, end: 20051009
  2. OTHER MEDICATIONS () ALL OTHER THERAPEUTIC PRODUCTS [Concomitant]

REACTIONS (6)
  - CONSTIPATION [None]
  - DIARRHOEA [None]
  - EYE IRRITATION [None]
  - HEADACHE [None]
  - PAIN [None]
  - SOMNOLENCE [None]
